FAERS Safety Report 8483831-0 (Version None)
Quarter: 2012Q3

REPORT INFORMATION
  Report Type: 
  Country: None (occurrence: None)
  Receive Date: 20120703
  Receipt Date: 20120627
  Transmission Date: 20120928
  Serious: Yes (Other)
  Sender: FDA-Public Use
  Company Number: US-BIOGENIDEC-2012BI016940

PATIENT
  Sex: Female

DRUGS (1)
  1. AVONEX [Suspect]
     Indication: MULTIPLE SCLEROSIS
     Route: 030
     Dates: start: 20101026

REACTIONS (13)
  - DEAFNESS UNILATERAL [None]
  - FLANK PAIN [None]
  - CONVULSION [None]
  - HYPOACUSIS [None]
  - MEMORY IMPAIRMENT [None]
  - CENTRAL NERVOUS SYSTEM LESION [None]
  - INJURY ASSOCIATED WITH DEVICE [None]
  - FALL [None]
  - CONTUSION [None]
  - MUSCLE ATROPHY [None]
  - BURNING SENSATION [None]
  - RIB FRACTURE [None]
  - MULTIPLE SCLEROSIS RELAPSE [None]
